FAERS Safety Report 17775006 (Version 1)
Quarter: 2020Q2

REPORT INFORMATION
  Report Type: Spontaneous
  Country: US (occurrence: US)
  Receive Date: 20200512
  Receipt Date: 20200512
  Transmission Date: 20200714
  Serious: Yes (Hospitalization)
  Sender: FDA-Public Use
  Company Number: None

PATIENT
  Sex: Female

DRUGS (10)
  1. VIT C IMMUNE WAG [Concomitant]
  2. B12 COMPLNCE KIT INJ [Concomitant]
  3. IRON SUPPLMT DRO [Concomitant]
  4. ALPRAZOLAM. [Concomitant]
     Active Substance: ALPRAZOLAM
  5. AZATHIOPRINE. [Concomitant]
     Active Substance: AZATHIOPRINE
  6. OXYCODONE [Concomitant]
     Active Substance: OXYCODONE
  7. SOIDIUM BICAR TAB [Concomitant]
  8. STELARA [Suspect]
     Active Substance: USTEKINUMAB
     Indication: CROHN^S DISEASE
     Dosage: ?          OTHER FREQUENCY:EVERY TWO MONTHS;?
     Route: 058
     Dates: start: 20190130
  9. FOLIC ACID. [Concomitant]
     Active Substance: FOLIC ACID
  10. VIT D3 GUMM CHW [Concomitant]

REACTIONS (1)
  - Crohn^s disease [None]
